FAERS Safety Report 5183897-X (Version None)
Quarter: 2006Q4

REPORT INFORMATION
  Report Type: 
  Country: None (occurrence: None)
  Receive Date: 20061220
  Receipt Date: 20060224
  Transmission Date: 20070319
  Serious: No
  Sender: FDA-Public Use
  Company Number: US-GLAXOSMITHKLINE-A0595067A

PATIENT
  Age: 70 Year
  Sex: Male

DRUGS (1)
  1. AMERICAN FARE NTS, 21MG STEP 1 [Suspect]
     Dates: end: 20060224

REACTIONS (1)
  - APPLICATION SITE ERYTHEMA [None]
